FAERS Safety Report 21105175 (Version 1)
Quarter: 2022Q3

REPORT INFORMATION
  Report Type: Report from Study
  Country: US (occurrence: US)
  Receive Date: 20220720
  Receipt Date: 20220720
  Transmission Date: 20221027
  Serious: No
  Sender: FDA-Public Use
  Company Number: US-BIOVITRUM-2022US07853

PATIENT
  Sex: Male

DRUGS (2)
  1. KINERET [Suspect]
     Active Substance: ANAKINRA
     Indication: Rheumatoid arthritis
     Dates: start: 20220603
  2. KINERET [Suspect]
     Active Substance: ANAKINRA
     Dates: start: 20220528

REACTIONS (4)
  - Sunburn [Unknown]
  - Swelling face [Unknown]
  - Eye swelling [Unknown]
  - Drug ineffective [Unknown]
